FAERS Safety Report 5802717-0 (Version None)
Quarter: 2008Q3

REPORT INFORMATION
  Report Type: 
  Country: None (occurrence: None)
  Receive Date: 20080708
  Receipt Date: 20080627
  Transmission Date: 20090109
  Serious: Yes (Other)
  Sender: FDA-Public Use
  Company Number: GB-ELI_LILLY_AND_COMPANY-GB200807000881

PATIENT

DRUGS (1)
  1. ZYPREXA [Suspect]
     Dosage: UNK, UNK
     Route: 064
     Dates: end: 20080601

REACTIONS (2)
  - DRUG EXPOSURE DURING PREGNANCY [None]
  - HYPERINSULINISM [None]
